FAERS Safety Report 25190508 (Version 2)
Quarter: 2025Q2

REPORT INFORMATION
  Report Type: Spontaneous
  Country: FI (occurrence: FI)
  Receive Date: 20250411
  Receipt Date: 20250429
  Transmission Date: 20250716
  Serious: Yes (Death, Hospitalization, Other)
  Sender: RECKITT BENCKISER
  Company Number: FI-INDIVIOR US-INDV-160320-2025

PATIENT

DRUGS (9)
  1. SUBOXONE [Suspect]
     Active Substance: BUPRENORPHINE HYDROCHLORIDE\NALOXONE HYDROCHLORIDE
     Indication: Drug use disorder
     Dosage: UNK, QD
     Route: 064
     Dates: start: 2016, end: 20160425
  2. SUBUTEX [Suspect]
     Active Substance: BUPRENORPHINE HYDROCHLORIDE
     Indication: Drug use disorder
     Route: 064
     Dates: start: 2016, end: 2016
  3. SUBUTEX [Suspect]
     Active Substance: BUPRENORPHINE HYDROCHLORIDE
     Route: 064
     Dates: start: 20160426, end: 2016
  4. SUBUTEX [Suspect]
     Active Substance: BUPRENORPHINE HYDROCHLORIDE
     Dosage: 2 MILLIGRAM, QD
     Route: 064
     Dates: start: 2016, end: 20161209
  5. SUBUTEX [Suspect]
     Active Substance: BUPRENORPHINE HYDROCHLORIDE
     Route: 063
     Dates: start: 201612, end: 20170128
  6. FENTANYL [Suspect]
     Active Substance: FENTANYL
     Indication: Product used for unknown indication
     Route: 064
     Dates: end: 20201209
  7. ALCOHOL [Suspect]
     Active Substance: ALCOHOL
     Indication: Product used for unknown indication
     Route: 064
     Dates: end: 20161209
  8. NICOTINE [Suspect]
     Active Substance: NICOTINE
     Indication: Product used for unknown indication
     Route: 064
     Dates: end: 20161209
  9. NICOTINE [Suspect]
     Active Substance: NICOTINE
     Route: 063
     Dates: start: 201612, end: 20170128

REACTIONS (4)
  - Sudden infant death syndrome [Fatal]
  - Hospitalisation [Recovered/Resolved]
  - Exposure via breast milk [Recovered/Resolved]
  - Foetal exposure during pregnancy [Recovered/Resolved]

NARRATIVE: CASE EVENT DATE: 20160101
